FAERS Safety Report 24828208 (Version 1)
Quarter: 2025Q1

REPORT INFORMATION
  Report Type: Other
  Country: PT (occurrence: PT)
  Receive Date: 20250109
  Receipt Date: 20250109
  Transmission Date: 20250409
  Serious: Yes (Hospitalization)
  Sender: BIONPHARMA INC.
  Company Number: PT-Bion-014639

PATIENT
  Age: 22 Year
  Sex: Male

DRUGS (2)
  1. IBUPROFEN [Suspect]
     Active Substance: IBUPROFEN
     Indication: Sickle cell anaemia with crisis
  2. DIPYRONE [Concomitant]
     Active Substance: DIPYRONE
     Indication: Sickle cell anaemia with crisis

REACTIONS (2)
  - Intentional product misuse [Unknown]
  - Drug ineffective [Not Recovered/Not Resolved]
